FAERS Safety Report 9355152 (Version 2)
Quarter: 2013Q3

REPORT INFORMATION
  Report Type: Spontaneous
  Country: US (occurrence: US)
  Receive Date: 20130619
  Receipt Date: 20130731
  Transmission Date: 20140515
  Serious: Yes (Other)
  Sender: FDA-Public Use
  Company Number: PHEH2013US012759

PATIENT
  Age: 32 Year
  Sex: Male

DRUGS (4)
  1. TEGRETOL-XR [Suspect]
     Dosage: UNK UKN, UNK
     Dates: end: 200708
  2. TEGRETOL-XR [Suspect]
     Dosage: 400 MG, DAILY
  3. TEGRETOL-XR [Suspect]
     Dosage: 1200 MG, DAILY
  4. CARBAMAZEPINE [Suspect]
     Dosage: UNK UKN, UNK
     Dates: start: 200708

REACTIONS (3)
  - Grand mal convulsion [Recovered/Resolved]
  - Complex partial seizures [Recovered/Resolved]
  - Convulsion [Recovered/Resolved]
